FAERS Safety Report 9928546 (Version 1)
Quarter: 2014Q1

REPORT INFORMATION
  Report Type: Report from Study
  Country: CA (occurrence: CA)
  Receive Date: 20140227
  Receipt Date: 20140227
  Transmission Date: 20141002
  Serious: Yes (Other)
  Sender: FDA-Public Use
  Company Number: CA-SA-2014SA025414

PATIENT
  Sex: 0

DRUGS (4)
  1. FLUOROURACIL [Suspect]
     Indication: ADENOCARCINOMA PANCREAS
     Route: 065
  2. OXALIPLATIN [Suspect]
     Indication: ADENOCARCINOMA PANCREAS
     Route: 065
  3. IRINOTECAN [Suspect]
     Indication: ADENOCARCINOMA PANCREAS
     Route: 065
  4. LEUCOVORIN [Suspect]
     Indication: ADENOCARCINOMA PANCREAS
     Route: 065

REACTIONS (2)
  - Cholangitis [Unknown]
  - Off label use [Unknown]
